FAERS Safety Report 7902501-8 (Version None)
Quarter: 2011Q4

REPORT INFORMATION
  Report Type: 
  Country: None (occurrence: None)
  Receive Date: 20111108
  Receipt Date: 20111026
  Transmission Date: 20120403
  Serious: Yes (Hospitalization, Other)
  Sender: FDA-Public Use
  Company Number: US-ELI_LILLY_AND_COMPANY-US201101000919

PATIENT
  Sex: Female

DRUGS (8)
  1. PREVACID [Concomitant]
     Dosage: 30 MG, QD
  2. LANTUS [Concomitant]
     Dosage: 40 IU, UNK
  3. JANUVIA [Concomitant]
     Dosage: 100 MG, QD
     Route: 065
  4. TRILIPIX [Concomitant]
     Dosage: 135 MG, QD
     Route: 065
  5. SYNTHROID [Concomitant]
     Dosage: 75 UG, QD
  6. VYTORIN [Concomitant]
     Dosage: UNK, QD
  7. FORTEO [Suspect]
     Indication: OSTEOPOROSIS
     Dosage: 20 UG, DAILY (1/D)
     Dates: start: 20101101
  8. FORTEO [Suspect]
     Dosage: 20 UG, QD
     Route: 065

REACTIONS (6)
  - MALAISE [None]
  - MUSCULAR WEAKNESS [None]
  - RENAL FAILURE [None]
  - AMNESIA [None]
  - BLOOD PRESSURE ABNORMAL [None]
  - HERPES ZOSTER [None]
